FAERS Safety Report 9524083 (Version 1)
Quarter: 2013Q1

REPORT INFORMATION
  Report Type: Spontaneous
  Country: US (occurrence: None)
  Receive Date: 20130314
  Receipt Date: 20130314
  Transmission Date: 20140127
  Serious: No
  Sender: FDA-Public Use
  Company Number: 1301USA013580

PATIENT
  Age: 54 Year
  Sex: Male

DRUGS (3)
  1. VICTRELIS (BOCEPREVIR)CAPSULE [Suspect]
     Indication: HEPATITIS C
     Dosage: UNK
     Dates: start: 201212, end: 2013
  2. RIBAVIRIN (RIBAVIRIN) TABLET, 200 MG [Suspect]
     Indication: HEPATITIS C
     Dosage: UNK
     Dates: start: 201212, end: 2013
  3. INTERFERON (UNSPECIFIED) (INTERFERON UNSPECIFIED)) [Suspect]
     Indication: HEPATITIS C
     Dosage: UNK
     Dates: start: 201212, end: 2013

REACTIONS (1)
  - No therapeutic response [None]
